FAERS Safety Report 5725030-9 (Version None)
Quarter: 2008Q2

REPORT INFORMATION
  Report Type: 
  Country: None (occurrence: None)
  Receive Date: 20080429
  Receipt Date: 20080411
  Transmission Date: 20081010
  Serious: Yes (Hospitalization)
  Sender: FDA-Public Use
  Company Number: 2006VX000418

PATIENT
  Age: 61 Year
  Sex: Female

DRUGS (3)
  1. PERMAX [Suspect]
     Indication: PARKINSON'S DISEASE
     Dosage: 1.75 MG; QID; PO
     Route: 048
  2. LEVODOPA [Concomitant]
  3. CARBIDOPA [Concomitant]

REACTIONS (12)
  - ACUTE RESPIRATORY DISTRESS SYNDROME [None]
  - AORTIC VALVE INCOMPETENCE [None]
  - CARDIAC FAILURE CONGESTIVE [None]
  - DELIRIUM [None]
  - DEVICE LEAKAGE [None]
  - MITRAL VALVE INCOMPETENCE [None]
  - OVERDOSE [None]
  - PERITONEAL EFFUSION [None]
  - PLEURAL EFFUSION [None]
  - RENAL FAILURE ACUTE [None]
  - TRICUSPID VALVE INCOMPETENCE [None]
  - UROSEPSIS [None]
